FAERS Safety Report 4840435-6 (Version None)
Quarter: 2005Q4

REPORT INFORMATION
  Report Type: 
  Country: None (occurrence: None)
  Receive Date: 20051128
  Receipt Date: 20051128
  Transmission Date: 20060501
  Serious: Yes (Hospitalization)
  Sender: FDA-Public Use
  Company Number: None

PATIENT
  Sex: Male
  Weight: 96.6 kg

DRUGS (11)
  1. CILOSTAZOL [Suspect]
     Indication: PERIPHERAL VASCULAR DISORDER
     Dosage: 100 MG BID
  2. CAPTOPRIL AND HYDROCHLOROTHIAZIDE [Concomitant]
  3. LASIX [Concomitant]
  4. GLYBURIDE [Concomitant]
  5. POTASSIUM CHLORIDE [Concomitant]
  6. COREG [Concomitant]
  7. SPIRONOLACTONE [Concomitant]
  8. COUMADIN [Concomitant]
  9. CALCIUM GLUCONATE [Concomitant]
  10. LIPITOR [Concomitant]
  11. LORTAB [Concomitant]

REACTIONS (3)
  - BLOOD CREATININE INCREASED [None]
  - BLOOD UREA INCREASED [None]
  - DIARRHOEA [None]
